FAERS Safety Report 4978295-5 (Version None)
Quarter: 2006Q2

REPORT INFORMATION
  Report Type: 
  Country: None (occurrence: None)
  Receive Date: 20060414
  Receipt Date: 20060404
  Transmission Date: 20061013
  Serious: Yes (Hospitalization)
  Sender: FDA-Public Use
  Company Number: 2006S1000079

PATIENT
  Age: 64 Year
  Sex: Male

DRUGS (2)
  1. SORIATANE [Suspect]
     Indication: SKIN CANCER
     Dosage: 25 MG;QOD;PO
     Route: 048
     Dates: start: 20060110, end: 20060301
  2. TOPICORT [Concomitant]

REACTIONS (1)
  - GRAND MAL CONVULSION [None]
